FAERS Safety Report 5709803-4 (Version None)
Quarter: 2008Q2

REPORT INFORMATION
  Report Type: 
  Country: None (occurrence: None)
  Receive Date: 20080418
  Receipt Date: 20080410
  Transmission Date: 20081010
  Serious: Yes (Other)
  Sender: FDA-Public Use
  Company Number: APCDSS2001001280

PATIENT
  Sex: Male

DRUGS (4)
  1. TOPAMAX [Suspect]
     Indication: EPILEPSY
     Route: 048
     Dates: start: 19971101, end: 19971201
  2. VALPROIC ACID [Concomitant]
     Route: 065
  3. ANTIHYPERTENSIVE (UNSPECIFIED) [Concomitant]
     Route: 065
  4. ANTICHOLESTEROL TABLETS (UNSPECIFIED) [Concomitant]
     Route: 048

REACTIONS (3)
  - ANGLE CLOSURE GLAUCOMA [None]
  - EYE PAIN [None]
  - VISUAL DISTURBANCE [None]
